FAERS Safety Report 8389512 (Version 3)
Quarter: 2015Q1

REPORT INFORMATION
  Report Type: Report from Study
  Country: US (occurrence: US)
  Receive Date: 20120203
  Receipt Date: 20150303
  Transmission Date: 20150721
  Serious: Yes (Death)
  Sender: FDA-Public Use
  Company Number: US-ROCHE-1036182

PATIENT
  Sex: Male
  Weight: 59.66 kg

DRUGS (30)
  1. AVASTIN [Suspect]
     Active Substance: BEVACIZUMAB
     Route: 042
     Dates: start: 20070315
  2. PARAPLATIN [Suspect]
     Active Substance: CARBOPLATIN
     Route: 042
     Dates: start: 20070207, end: 20070823
  3. PARAPLATIN [Suspect]
     Active Substance: CARBOPLATIN
     Route: 042
     Dates: start: 20070315
  4. ROXANOL [Concomitant]
     Active Substance: MORPHINE SULFATE
     Indication: PAIN
     Route: 048
     Dates: start: 20070713, end: 20071012
  5. DURAGESIC [Concomitant]
     Active Substance: FENTANYL
     Route: 065
     Dates: start: 20071011, end: 20071012
  6. ARANESP [Concomitant]
     Active Substance: DARBEPOETIN ALFA
     Route: 065
  7. ALOXI [Concomitant]
     Active Substance: PALONOSETRON HYDROCHLORIDE
     Route: 065
     Dates: start: 20070308
  8. DECADRON [Concomitant]
     Active Substance: DEXAMETHASONE
     Route: 065
     Dates: start: 20070308
  9. AVASTIN [Suspect]
     Active Substance: BEVACIZUMAB
     Route: 042
     Dates: start: 20070329
  10. AVASTIN [Suspect]
     Active Substance: BEVACIZUMAB
     Route: 042
     Dates: start: 20070530
  11. ROXANOL [Concomitant]
     Active Substance: MORPHINE SULFATE
     Route: 048
     Dates: start: 20071012, end: 20071014
  12. DURAGESIC [Concomitant]
     Active Substance: FENTANYL
     Route: 065
     Dates: start: 20070907, end: 20071003
  13. AVASTIN [Suspect]
     Active Substance: BEVACIZUMAB
     Route: 042
     Dates: start: 20070713, end: 20070927
  14. TAXOTERE [Suspect]
     Active Substance: DOCETAXEL
     Route: 042
     Dates: start: 20070530
  15. ATIVAN [Concomitant]
     Active Substance: LORAZEPAM
     Dosage: 0.5 MG- 1.0 MG
     Route: 048
     Dates: start: 20071011, end: 20071014
  16. AVASTIN [Suspect]
     Active Substance: BEVACIZUMAB
     Indication: LUNG NEOPLASM MALIGNANT
     Route: 042
     Dates: start: 20070221, end: 20070606
  17. AVASTIN [Suspect]
     Active Substance: BEVACIZUMAB
     Dosage: 3 WEEKS, THEN 1 WEEK OFF
     Route: 042
     Dates: start: 20070308
  18. TAXOTERE [Suspect]
     Active Substance: DOCETAXEL
     Route: 042
     Dates: start: 20070308
  19. TAXOTERE [Suspect]
     Active Substance: DOCETAXEL
     Route: 042
     Dates: start: 20060606
  20. PARAPLATIN [Suspect]
     Active Substance: CARBOPLATIN
     Indication: NON-SMALL CELL LUNG CANCER
     Route: 042
     Dates: start: 20070207, end: 20070823
  21. DURAGESIC [Concomitant]
     Active Substance: FENTANYL
     Route: 065
     Dates: start: 20071003, end: 20071011
  22. TAXOL [Concomitant]
     Active Substance: PACLITAXEL
  23. PARAPLATIN [Suspect]
     Active Substance: CARBOPLATIN
     Route: 042
     Dates: start: 20060606
  24. PARAPLATIN [Suspect]
     Active Substance: CARBOPLATIN
     Route: 042
     Dates: start: 20070329
  25. NEUPOGEN [Concomitant]
     Active Substance: FILGRASTIM
     Route: 065
  26. TAXOTERE [Suspect]
     Active Substance: DOCETAXEL
     Indication: NON-SMALL CELL LUNG CANCER
     Route: 042
     Dates: start: 20070207, end: 20070823
  27. PARAPLATIN [Suspect]
     Active Substance: CARBOPLATIN
     Route: 042
     Dates: start: 20070308
  28. GEMZAR [Suspect]
     Active Substance: GEMCITABINE HYDROCHLORIDE
     Indication: NON-SMALL CELL LUNG CANCER
     Route: 042
     Dates: start: 20070927, end: 20070927
  29. TAXOTERE [Suspect]
     Active Substance: DOCETAXEL
     Route: 042
     Dates: start: 20070329
  30. DURAGESIC [Concomitant]
     Active Substance: FENTANYL
     Route: 065
     Dates: start: 20071012, end: 20071014

REACTIONS (2)
  - Off label use [Unknown]
  - Disease progression [Fatal]
